FAERS Safety Report 8679825 (Version 3)
Quarter: 2013Q1

REPORT INFORMATION
  Report Type: Spontaneous
  Country: US (occurrence: US)
  Receive Date: 20120724
  Receipt Date: 20130108
  Transmission Date: 20140127
  Serious: Yes (Hospitalization, Other)
  Sender: FDA-Public Use
  Company Number: US-ELI_LILLY_AND_COMPANY-US201207004145

PATIENT
  Age: 52 None
  Sex: Female
  Weight: 53.52 kg

DRUGS (13)
  1. HUMALOG LISPRO [Suspect]
     Indication: DIABETES MELLITUS
     Dosage: 8 U, TID
     Dates: start: 20110909
  2. HUMALOG LISPRO [Suspect]
     Dosage: UNK, PRN
  3. HUMALOG LISPRO [Suspect]
     Dosage: UNK, PRN
  4. HUMALOG LISPRO [Suspect]
     Dosage: UNK, PRN
  5. HUMALOG LISPRO [Suspect]
     Dosage: UNK, PRN
  6. LANTUS [Concomitant]
     Indication: DIABETES MELLITUS
     Dosage: 14 U, EACH EVENING
  7. LASIX [Concomitant]
     Dosage: 40 MG, QD
  8. LABETALOL [Concomitant]
     Dosage: 300 MG, UNK
  9. NORVASC [Concomitant]
     Dosage: 5 MG, QD
  10. IRON SULFATE [Concomitant]
     Dosage: 325 MG, QD
  11. COMBIVENT [Concomitant]
     Dosage: UNK, PRN
  12. PHENYTOIN [Concomitant]
     Indication: CONVULSION
     Dosage: 200 MG, BID
  13. SEROQUEL [Concomitant]
     Dosage: 25 MG, EACH EVENING

REACTIONS (19)
  - Blood glucose decreased [Recovered/Resolved]
  - Loss of consciousness [Recovered/Resolved]
  - Convulsion [Unknown]
  - Blood glucose decreased [Unknown]
  - Dizziness [Recovered/Resolved]
  - Confusional state [Recovered/Resolved]
  - Feeling abnormal [Recovered/Resolved]
  - Vomiting [Recovered/Resolved]
  - Hypertension [Recovered/Resolved]
  - Migraine [Not Recovered/Not Resolved]
  - Stress [Not Recovered/Not Resolved]
  - Blood glucose increased [Recovered/Resolved]
  - Blood glucose decreased [Recovered/Resolved]
  - Hypoaesthesia [Recovered/Resolved]
  - Presyncope [Recovered/Resolved]
  - Drug ineffective [Unknown]
  - Faecal incontinence [Not Recovered/Not Resolved]
  - Diarrhoea [Not Recovered/Not Resolved]
  - Frequent bowel movements [Not Recovered/Not Resolved]
